FAERS Safety Report 9345047 (Version 2)
Quarter: 2013Q3

REPORT INFORMATION
  Report Type: Report from Study
  Country: FR (occurrence: FR)
  Receive Date: 20130612
  Receipt Date: 20130904
  Transmission Date: 20140515
  Serious: Yes (Death, Other)
  Sender: FDA-Public Use
  Company Number: FR-ROCHE-721511

PATIENT
  Sex: 0

DRUGS (7)
  1. RITUXIMAB [Suspect]
     Indication: DIFFUSE LARGE B-CELL LYMPHOMA
     Route: 042
  2. CYCLOPHOSPHAMIDE [Suspect]
     Indication: DIFFUSE LARGE B-CELL LYMPHOMA
     Route: 065
  3. DOXORUBICIN [Suspect]
     Indication: DIFFUSE LARGE B-CELL LYMPHOMA
     Route: 065
  4. VINCRISTINE [Suspect]
     Indication: DIFFUSE LARGE B-CELL LYMPHOMA
     Route: 065
  5. PREDNISONE [Suspect]
     Indication: DIFFUSE LARGE B-CELL LYMPHOMA
     Dosage: FOR 5 DAYS, EVERY 14 OR 21 DAYS
     Route: 048
  6. METHOTREXATE [Concomitant]
     Indication: PROPHYLAXIS
     Route: 037
  7. DARBEPOETIN ALFA [Concomitant]
     Indication: PROPHYLAXIS
     Route: 065

REACTIONS (25)
  - Infection [Fatal]
  - Small intestinal perforation [Fatal]
  - Cardiac failure [Fatal]
  - Myocardial infarction [Fatal]
  - Cerebrovascular accident [Fatal]
  - Acute myeloid leukaemia [Fatal]
  - Respiratory failure [Fatal]
  - Completed suicide [Fatal]
  - Cerebrovascular accident [Unknown]
  - Neutropenia [Unknown]
  - Venous thrombosis [Unknown]
  - Pulmonary embolism [Unknown]
  - Anaemia [Unknown]
  - Thrombocytopenia [Unknown]
  - Febrile neutropenia [Unknown]
  - Nausea [Unknown]
  - Vomiting [Unknown]
  - Diarrhoea [Unknown]
  - Mucosal inflammation [Unknown]
  - Cardiac disorder [Unknown]
  - Angiopathy [Unknown]
  - Blood creatinine increased [Unknown]
  - Hepatic enzyme increased [Unknown]
  - Nervous system disorder [Unknown]
  - Skin disorder [Unknown]
